FAERS Safety Report 18335939 (Version 8)
Quarter: 2020Q4

REPORT INFORMATION
  Report Type: Report from Study
  Country: CO (occurrence: CO)
  Receive Date: 20201001
  Receipt Date: 20201231
  Transmission Date: 20210113
  Serious: Yes (Hospitalization, Other)
  Sender: FDA-Public Use
  Company Number: CO-SEATTLE GENETICS-2020SGN04225

PATIENT
  Sex: Female
  Weight: 43 kg

DRUGS (2)
  1. BRENTUXIMAB VEDOTIN [Suspect]
     Active Substance: BRENTUXIMAB VEDOTIN
     Dosage: 77.4 MILLIGRAM, Q3WEEKS
     Route: 042
  2. BRENTUXIMAB VEDOTIN [Suspect]
     Active Substance: BRENTUXIMAB VEDOTIN
     Indication: HODGKIN^S DISEASE
     Dosage: 102 MILLIGRAM, Q3WEEKS
     Route: 042
     Dates: start: 20181220

REACTIONS (4)
  - Pyrexia [Unknown]
  - Hodgkin^s disease [Unknown]
  - Infection [Unknown]
  - Weight decreased [Unknown]
